FAERS Safety Report 24835299 (Version 1)
Quarter: 2025Q1

REPORT INFORMATION
  Report Type: Report from Study
  Country: US (occurrence: US)
  Receive Date: 20250113
  Receipt Date: 20250113
  Transmission Date: 20250409
  Serious: Yes (Hospitalization)
  Sender: RECORDATI
  Company Number: US-RECORDATI-2025000042

PATIENT

DRUGS (1)
  1. ISTURISA [Suspect]
     Active Substance: OSILODROSTAT PHOSPHATE
     Indication: Cushing^s syndrome
     Dates: start: 20240715

REACTIONS (4)
  - Dizziness [Recovering/Resolving]
  - Nausea [Unknown]
  - Headache [Unknown]
  - Fluid retention [Unknown]

NARRATIVE: CASE EVENT DATE: 20241227
